FAERS Safety Report 24856151 (Version 1)
Quarter: 2025Q1

REPORT INFORMATION
  Report Type: Spontaneous
  Country: DZ (occurrence: DZ)
  Receive Date: 20250117
  Receipt Date: 20250117
  Transmission Date: 20250409
  Serious: Yes (Other)
  Sender: PFIZER
  Company Number: DZ-PFIZER INC-202500009298

PATIENT
  Sex: Female

DRUGS (1)
  1. CRIZOTINIB [Suspect]
     Active Substance: CRIZOTINIB
     Indication: Lung cancer metastatic

REACTIONS (2)
  - Thrombocytopenia [Unknown]
  - Fatigue [Unknown]
